FAERS Safety Report 7236442-9 (Version None)
Quarter: 2011Q1

REPORT INFORMATION
  Report Type: 
  Country: None (occurrence: None)
  Receive Date: 20110120
  Receipt Date: 20110115
  Transmission Date: 20110831
  Serious: Yes (Hospitalization, Other)
  Sender: FDA-Public Use
  Company Number: CA-ABBOTT-11P-028-0697177-00

PATIENT
  Sex: Female
  Weight: 64 kg

DRUGS (4)
  1. HUMIRA [Suspect]
     Dates: start: 20090525
  2. LAXADAY [Concomitant]
     Indication: CONSTIPATION
     Dosage: AS NEEDED
     Route: 048
     Dates: start: 20100505
  3. METAMUCIL-2 [Concomitant]
     Indication: CONSTIPATION
     Dosage: 3 TEASPOONS/DAY AS NEEDED
     Route: 048
     Dates: start: 20101126
  4. HUMIRA [Suspect]
     Indication: PRODUCT USED FOR UNKNOWN INDICATION
     Route: 058
     Dates: end: 20090525

REACTIONS (3)
  - BLADDER PAIN [None]
  - BLADDER DISCOMFORT [None]
  - URINARY BLADDER ABSCESS [None]
